FAERS Safety Report 7537668-7 (Version None)
Quarter: 2011Q2

REPORT INFORMATION
  Report Type: 
  Country: None (occurrence: None)
  Receive Date: 20110609
  Receipt Date: 20071026
  Transmission Date: 20111010
  Serious: Yes (Death, Hospitalization, Other)
  Sender: FDA-Public Use
  Company Number: PHMT2007CA02000

PATIENT
  Sex: Male

DRUGS (1)
  1. EXJADE [Suspect]
     Indication: IRON OVERLOAD
     Route: 048
     Dates: start: 20060101, end: 20070801

REACTIONS (4)
  - BONE MARROW FAILURE [None]
  - INFECTION [None]
  - MYELODYSPLASTIC SYNDROME [None]
  - ACUTE LEUKAEMIA [None]
